FAERS Safety Report 4482124-6 (Version None)
Quarter: 2004Q4

REPORT INFORMATION
  Report Type: 
  Country: None (occurrence: None)
  Receive Date: 20041020
  Receipt Date: 20041005
  Transmission Date: 20050328
  Serious: Yes (Other)
  Sender: FDA-Public Use
  Company Number: USA041080299

PATIENT
  Age: 80 Year
  Sex: Female

DRUGS (1)
  1. SYMBYAX [Suspect]
     Indication: BIPOLAR DISORDER

REACTIONS (6)
  - CHOKING [None]
  - CIRCULATORY COLLAPSE [None]
  - DIZZINESS [None]
  - OESOPHAGEAL DISORDER [None]
  - PALPITATIONS [None]
  - TRANSIENT ISCHAEMIC ATTACK [None]
